FAERS Safety Report 6356509-7 (Version None)
Quarter: 2009Q3

REPORT INFORMATION
  Report Type: 
  Country: None (occurrence: None)
  Receive Date: 20090915
  Receipt Date: 20090908
  Transmission Date: 20100115
  Serious: Yes (Hospitalization)
  Sender: FDA-Public Use
  Company Number: B0592069A

PATIENT
  Age: 19 Year
  Sex: Male

DRUGS (3)
  1. AMOXICILLIN AND CLAVULANATE POTASSIUM [Suspect]
     Route: 065
     Dates: start: 20090620, end: 20090624
  2. ZITHROMAX [Suspect]
     Route: 065
     Dates: start: 20090615, end: 20090620
  3. IBUPROFEN [Concomitant]
     Route: 048
     Dates: start: 20090620

REACTIONS (3)
  - RASH MACULAR [None]
  - RASH MORBILLIFORM [None]
  - RASH PAPULAR [None]
